FAERS Safety Report 11659165 (Version 1)
Quarter: 2015Q4

REPORT INFORMATION
  Report Type: Spontaneous
  Country: US (occurrence: US)
  Receive Date: 20151026
  Receipt Date: 20151026
  Transmission Date: 20160304
  Serious: No
  Sender: FDA-Public Use
  Company Number: US-PFIZER INC-2015345559

PATIENT
  Age: 50 Year
  Sex: Female
  Weight: 44 kg

DRUGS (1)
  1. LORATADINE. [Suspect]
     Active Substance: LORATADINE
     Indication: HYPERSENSITIVITY
     Dosage: 10 MG, 1X/DAY

REACTIONS (4)
  - Palpitations [Recovered/Resolved]
  - Cardiac disorder [Recovered/Resolved]
  - Renal disorder [Recovered/Resolved]
  - Drug ineffective [Recovered/Resolved]
